FAERS Safety Report 8440655-8 (Version None)
Quarter: 2012Q2

REPORT INFORMATION
  Report Type: 
  Country: None (occurrence: None)
  Receive Date: 20120615
  Receipt Date: 20120606
  Transmission Date: 20120825
  Serious: Yes (Other)
  Sender: FDA-Public Use
  Company Number: CO-JNJFOC-20120604250

PATIENT
  Age: 53 Year
  Sex: Male

DRUGS (1)
  1. REMICADE [Suspect]
     Indication: PRODUCT USED FOR UNKNOWN INDICATION
     Route: 042

REACTIONS (5)
  - PRODUCT COUNTERFEIT [None]
  - FATIGUE [None]
  - RASH GENERALISED [None]
  - INFUSION RELATED REACTION [None]
  - RESPIRATORY DISTRESS [None]
